FAERS Safety Report 7545538-3 (Version None)
Quarter: 2011Q2

REPORT INFORMATION
  Report Type: 
  Country: None (occurrence: None)
  Receive Date: 20110613
  Receipt Date: 20110613
  Transmission Date: 20111010
  Serious: Yes (Hospitalization)
  Sender: FDA-Public Use
  Company Number: None

PATIENT
  Age: 47 Year
  Sex: Male
  Weight: 107.3 kg

DRUGS (1)
  1. LISINOPRIL [Suspect]
     Indication: HYPERTENSION
     Dosage: 10 MG EVERY DAY PO
     Route: 048
     Dates: start: 20060802, end: 20110327

REACTIONS (6)
  - PANCREATITIS [None]
  - DYSPHONIA [None]
  - ANGIOEDEMA [None]
  - COUGH [None]
  - THROAT TIGHTNESS [None]
  - WHEEZING [None]
